FAERS Safety Report 7788848-7 (Version None)
Quarter: 2011Q3

REPORT INFORMATION
  Report Type: 
  Country: None (occurrence: None)
  Receive Date: 20110928
  Receipt Date: 20110919
  Transmission Date: 20111222
  Serious: No
  Sender: FDA-Public Use
  Company Number: 2010S1001079

PATIENT
  Age: 54 Year
  Sex: Female

DRUGS (1)
  1. FLEETS PHOSPHO-SODA [Suspect]

REACTIONS (5)
  - ANAEMIA [None]
  - HYPERPHOSPHATAEMIA [None]
  - BLOOD CREATININE INCREASED [None]
  - DIALYSIS [None]
  - RENAL DISORDER [None]
